FAERS Safety Report 10100098 (Version 1)
Quarter: 2014Q2

REPORT INFORMATION
  Report Type: Spontaneous
  Country: IT (occurrence: IT)
  Receive Date: 20140423
  Receipt Date: 20140423
  Transmission Date: 20141212
  Serious: Yes (Hospitalization)
  Sender: FDA-Public Use
  Company Number: IT-VERTEX PHARMACEUTICALS INC-2014-002018

PATIENT
  Age: 42 Year
  Sex: Male

DRUGS (4)
  1. INCIVO [Suspect]
     Indication: HEPATITIS C
     Dosage: 6 DF, QD
     Route: 048
     Dates: start: 20140203, end: 20140331
  2. METRONIDAZOLE [Suspect]
     Indication: STOMATITIS
     Dosage: 3 DF, QD
     Route: 048
     Dates: start: 20140325, end: 20140331
  3. RIBAVIRIN [Concomitant]
     Indication: HEPATITIS C
     Dosage: 4 DF, UNK
     Route: 065
     Dates: start: 20140203, end: 20140401
  4. PEGASYS [Concomitant]
     Indication: HEPATITIS C
     Dosage: UNK
     Route: 058
     Dates: start: 20140203, end: 20140329

REACTIONS (5)
  - Pyrexia [Recovering/Resolving]
  - Asthenia [Recovering/Resolving]
  - Rash [Unknown]
  - Erythema [Recovering/Resolving]
  - Pruritus [Recovering/Resolving]
